FAERS Safety Report 12331593 (Version 1)
Quarter: 2016Q2

REPORT INFORMATION
  Report Type: Spontaneous
  Country: US (occurrence: None)
  Receive Date: 20160503
  Receipt Date: 20160503
  Transmission Date: 20160815
  Serious: Yes (Hospitalization)
  Sender: FDA-Public Use
  Company Number: None

PATIENT
  Age: 69 Year
  Sex: Male
  Weight: 83.01 kg

DRUGS (3)
  1. ASPIRIN. [Concomitant]
     Active Substance: ASPIRIN
  2. VANCOMYCIN HCL-0.9% NACL 1.25 GR [Suspect]
     Active Substance: VANCOMYCIN HYDROCHLORIDE
     Indication: INFECTION
     Dosage: EVERY 12 HOURS INTO A VEIN
     Route: 042
     Dates: start: 20150912, end: 20151102
  3. LISINOPRIL. [Concomitant]
     Active Substance: LISINOPRIL

REACTIONS (4)
  - Blood creatinine increased [None]
  - Aortic aneurysm [None]
  - Urinary retention [None]
  - Blood pressure increased [None]

NARRATIVE: CASE EVENT DATE: 20150911
